FAERS Safety Report 9416156 (Version 2)
Quarter: 2013Q3

REPORT INFORMATION
  Report Type: Report from Study
  Country: US (occurrence: US)
  Receive Date: 20130724
  Receipt Date: 20130802
  Transmission Date: 20140515
  Serious: Yes (Other)
  Sender: FDA-Public Use
  Company Number: US-BAYER-2013-086894

PATIENT
  Sex: Female

DRUGS (1)
  1. MIRENA [Suspect]
     Dosage: 20 MCG/24HR, CONT
     Route: 015
     Dates: end: 201306

REACTIONS (7)
  - Post procedural haemorrhage [Not Recovered/Not Resolved]
  - Mood altered [None]
  - Headache [None]
  - Weight decreased [None]
  - Libido decreased [None]
  - Device misuse [None]
  - Menorrhagia [None]
